FAERS Safety Report 9253688 (Version 1)
Quarter: 2013Q2

REPORT INFORMATION
  Report Type: Spontaneous
  Country: GB (occurrence: GB)
  Receive Date: 20130425
  Receipt Date: 20130425
  Transmission Date: 20140414
  Serious: Yes (Other)
  Sender: FDA-Public Use
  Company Number: GB-009507513-1304GBR012550

PATIENT
  Age: 26 Year
  Sex: Female
  Weight: 74 kg

DRUGS (1)
  1. NUVARING [Suspect]
     Indication: CONTRACEPTION
     Dosage: 1 DF, 1/3 WEEKS
     Route: 067
     Dates: start: 20121001, end: 20130117

REACTIONS (1)
  - Pregnancy on contraceptive [Unknown]
